FAERS Safety Report 15834563 (Version 1)
Quarter: 2019Q1

REPORT INFORMATION
  Report Type: Spontaneous
  Country: US (occurrence: US)
  Receive Date: 20190116
  Receipt Date: 20190116
  Transmission Date: 20190417
  Serious: No
  Sender: FDA-Public Use
  Company Number: US-DUSA PHARMACEUTICALS, INC.-2061285

PATIENT

DRUGS (2)
  1. LEVULAN KERASTICK [Suspect]
     Active Substance: AMINOLEVULINIC ACID HYDROCHLORIDE
     Indication: PRODUCT USED FOR UNKNOWN INDICATION
     Route: 061
     Dates: start: 201804, end: 201804
  2. BLU-U LIGHT (BLU-U BLUE LIGHT PHOTODYNAMIC THERAPY ILLUMINATOR) [Suspect]
     Active Substance: DEVICE

REACTIONS (5)
  - Erythema [Unknown]
  - Wrong technique in product usage process [Unknown]
  - Swelling [Unknown]
  - Pruritus [Unknown]
  - Application site reaction [Unknown]

NARRATIVE: CASE EVENT DATE: 201804
